FAERS Safety Report 7891061-6 (Version None)
Quarter: 2011Q4

REPORT INFORMATION
  Report Type: 
  Country: None (occurrence: None)
  Receive Date: 20111103
  Receipt Date: 20110728
  Transmission Date: 20120403
  Serious: No
  Sender: FDA-Public Use
  Company Number: US-AMGEN-USASP2011038377

PATIENT
  Age: 4 Year
  Sex: Female
  Weight: 18.141 kg

DRUGS (1)
  1. ENBREL [Suspect]
     Indication: PRODUCT USED FOR UNKNOWN INDICATION
     Dosage: 25 MG, QWK
     Dates: start: 20100312

REACTIONS (2)
  - VOMITING [None]
  - PAIN IN EXTREMITY [None]
